FAERS Safety Report 20010065 (Version 2)
Quarter: 2021Q4

REPORT INFORMATION
  Report Type: Spontaneous
  Country: US (occurrence: None)
  Receive Date: 20211028
  Receipt Date: 20211213
  Transmission Date: 20220303
  Serious: No
  Sender: FDA-Public Use
  Company Number: 2021A773590

PATIENT
  Age: 730 Month
  Sex: Female
  Weight: 62.1 kg

DRUGS (2)
  1. SYMBICORT [Suspect]
     Active Substance: BUDESONIDE\FORMOTEROL FUMARATE DIHYDRATE
     Indication: Chronic obstructive pulmonary disease
     Dosage: 160/4.5 2 PUFF TWICE EACH DAY
     Route: 055
     Dates: start: 202109
  2. PROCHAMBER [Concomitant]
     Dates: start: 20211005

REACTIONS (5)
  - Limb discomfort [Not Recovered/Not Resolved]
  - Candida infection [Recovering/Resolving]
  - Product dose omission issue [Recovered/Resolved]
  - Wrong technique in device usage process [Recovered/Resolved]
  - Device delivery system issue [Unknown]

NARRATIVE: CASE EVENT DATE: 20210901
